FAERS Safety Report 13513914 (Version 1)
Quarter: 2017Q2

REPORT INFORMATION
  Report Type: Spontaneous
  Country: US (occurrence: US)
  Receive Date: 20170504
  Receipt Date: 20170504
  Transmission Date: 20170830
  Serious: No
  Sender: FDA-Public Use
  Company Number: US-PFIZER INC-2017188986

PATIENT
  Sex: Female

DRUGS (2)
  1. XELJANZ XR [Suspect]
     Active Substance: TOFACITINIB CITRATE
     Dosage: 11 MG, DAILY
  2. PREDNISONE. [Suspect]
     Active Substance: PREDNISONE
     Dosage: UNK

REACTIONS (7)
  - Peripheral swelling [Recovering/Resolving]
  - Burning sensation [Unknown]
  - Rash [Unknown]
  - Arthralgia [Recovered/Resolved]
  - Rash erythematous [Unknown]
  - Synovitis [Unknown]
  - Tenderness [Unknown]
